FAERS Safety Report 12333720 (Version 1)
Quarter: 2016Q2

REPORT INFORMATION
  Report Type: Spontaneous
  Country: US (occurrence: US)
  Receive Date: 20160504
  Receipt Date: 20160504
  Transmission Date: 20160815
  Serious: No
  Sender: FDA-Public Use
  Company Number: US-ROCHE-1667004

PATIENT
  Sex: Male
  Weight: 89.89 kg

DRUGS (1)
  1. ESBRIET [Suspect]
     Active Substance: PIRFENIDONE
     Indication: IDIOPATHIC PULMONARY FIBROSIS
     Route: 048
     Dates: start: 20150409

REACTIONS (3)
  - Rash [Recovered/Resolved]
  - Pulmonary function test decreased [Unknown]
  - Dyspepsia [Recovered/Resolved]
